FAERS Safety Report 18669885 (Version 2)
Quarter: 2021Q1

REPORT INFORMATION
  Report Type: Spontaneous
  Country: US (occurrence: US)
  Receive Date: 20201228
  Receipt Date: 20210104
  Transmission Date: 20210419
  Serious: Yes (Other)
  Sender: FDA-Public Use
  Company Number: US-PFIZER INC-2020509306

PATIENT
  Age: 30 Year
  Sex: Female

DRUGS (1)
  1. EPINEPHRINE. [Suspect]
     Active Substance: EPINEPHRINE
     Indication: URTICARIA
     Dosage: UNK UNK, 2X/DAY (2 ROUNDS)
     Dates: start: 202012

REACTIONS (1)
  - Respiratory rate increased [Recovering/Resolving]

NARRATIVE: CASE EVENT DATE: 202012
